FAERS Safety Report 9227873 (Version 1)
Quarter: 2013Q2

REPORT INFORMATION
  Report Type: Spontaneous
  Country: US (occurrence: US)
  Receive Date: 20130412
  Receipt Date: 20130412
  Transmission Date: 20140414
  Serious: Yes (Other)
  Sender: FDA-Public Use
  Company Number: US-PFIZER INC-2013112598

PATIENT
  Sex: Female

DRUGS (2)
  1. SUTENT [Suspect]
     Indication: PANCREATIC CARCINOMA
     Dosage: UNK
  2. SUTENT [Suspect]
     Indication: ADENOCARCINOMA

REACTIONS (2)
  - Myocardial infarction [Unknown]
  - Thrombotic thrombocytopenic purpura [Unknown]
